FAERS Safety Report 7561363-1 (Version None)
Quarter: 2011Q2

REPORT INFORMATION
  Report Type: 
  Country: None (occurrence: None)
  Receive Date: 20110621
  Receipt Date: 20110504
  Transmission Date: 20111010
  Serious: Yes (Hospitalization)
  Sender: FDA-Public Use
  Company Number: US-ASTRAZENECA-2011SE17026

PATIENT
  Age: 45 Year
  Sex: Female

DRUGS (1)
  1. PULMICORT FLEXHALER [Suspect]
     Indication: OESOPHAGEAL SPASM
     Route: 055

REACTIONS (2)
  - INCORRECT DOSE ADMINISTERED [None]
  - ADRENAL INSUFFICIENCY [None]
